FAERS Safety Report 9516608 (Version 3)
Quarter: 2014Q1

REPORT INFORMATION
  Report Type: Spontaneous
  Country: US (occurrence: US)
  Receive Date: 20130911
  Receipt Date: 20140207
  Transmission Date: 20141002
  Serious: Yes (Other)
  Sender: FDA-Public Use
  Company Number: US-GLAXOSMITHKLINE-A1040864A

PATIENT
  Age: 85 Year
  Sex: Female

DRUGS (2)
  1. ADVAIR [Suspect]
     Indication: ASTHMA
     Dosage: 1PUFF TWICE PER DAY
     Route: 055
  2. SINGULAIR [Suspect]
     Indication: ASTHMA
     Route: 065
     Dates: start: 201302

REACTIONS (9)
  - Candida infection [Not Recovered/Not Resolved]
  - Cough [Recovering/Resolving]
  - Productive cough [Recovering/Resolving]
  - Spirometry abnormal [Not Recovered/Not Resolved]
  - Drug ineffective [Unknown]
  - Malaise [Recovering/Resolving]
  - Dyspnoea [Not Recovered/Not Resolved]
  - Sensation of foreign body [Unknown]
  - Obstructive airways disorder [Unknown]
